FAERS Safety Report 5270406-X (Version None)
Quarter: 2007Q1

REPORT INFORMATION
  Report Type: 
  Country: None (occurrence: None)
  Receive Date: 20070314
  Receipt Date: 20070301
  Transmission Date: 20070707
  Serious: Yes (Death, Hospitalization)
  Sender: FDA-Public Use
  Company Number: RENA-12095

PATIENT
  Age: 78 Year
  Sex: Male

DRUGS (12)
  1. PHOSBLOCK 250 MG TABLETS [Suspect]
     Indication: HYPERPHOSPHATAEMIA
     Dosage: 1.5 G DAILY PO
     Route: 048
     Dates: start: 20070120, end: 20070121
  2. D-SORBITOL [Suspect]
     Indication: CONSTIPATION
     Dosage: 3 G DAILY PO
     Route: 048
     Dates: start: 20070120, end: 20070121
  3. VALSARTAN [Concomitant]
  4. IMIDAPRIL HYDROCHLORIDE [Concomitant]
  5. AMLODIPINE BESYLATE [Concomitant]
  6. TICLOPIDINE HYDROCHLORIDE [Concomitant]
  7. CALCITRIOL [Concomitant]
  8. ALLOPURINOL [Concomitant]
  9. PRECIPITATED CALCIUM CARBONATE [Concomitant]
  10. FUROSEMIDE [Concomitant]
  11. SENNOSIDE [Concomitant]
  12. HUMAN INSULIN (GENETIC RECOMBINATION) [Concomitant]

REACTIONS (2)
  - COLITIS ISCHAEMIC [None]
  - ILEUS PARALYTIC [None]
